FAERS Safety Report 9776133 (Version 2)
Quarter: 2014Q2

REPORT INFORMATION
  Report Type: Spontaneous
  Country: DE (occurrence: DE)
  Receive Date: 20131220
  Receipt Date: 20140606
  Transmission Date: 20141212
  Serious: Yes (Death, Other)
  Sender: FDA-Public Use
  Company Number: DE-009507513-1312DEU009241

PATIENT
  Age: 65 Year
  Sex: Female
  Weight: 67 kg

DRUGS (10)
  1. JANUMET [Suspect]
     Indication: TYPE 2 DIABETES MELLITUS
     Dosage: UNK
     Route: 048
     Dates: end: 201011
  2. METFORMIN [Concomitant]
     Dosage: UNK, TWO TIMES DAILY
  3. DIOVAN [Concomitant]
     Dosage: UNK, ONCE DAILY
  4. NOVO-NORM [Concomitant]
     Dosage: UNK, ONCE DAILY
  5. METFORMIN [Concomitant]
     Dosage: UNK, TID
  6. CO-DIOVAN [Concomitant]
     Dosage: 1 DF, UNK
  7. CO-DIOVAN [Concomitant]
     Dosage: 0.5 DF, UNK
  8. PANTOPRAZOLE [Concomitant]
     Dosage: UNK, QD
  9. LORAZEPAM [Concomitant]
     Dosage: 1 DF, UNK
  10. LORAZEPAM [Concomitant]
     Dosage: UNK, AS NEEDED

REACTIONS (1)
  - Pancreatic carcinoma [Fatal]
